FAERS Safety Report 23520454 (Version 3)
Quarter: 2024Q1

REPORT INFORMATION
  Report Type: Report from Study
  Country: IE (occurrence: IE)
  Receive Date: 20240214
  Receipt Date: 20240318
  Transmission Date: 20240410
  Serious: Yes (Other)
  Sender: FDA-Public Use
  Company Number: IE-Merck Healthcare KGaA-2024007944

PATIENT
  Sex: Female

DRUGS (2)
  1. MAVENCLAD [Suspect]
     Active Substance: CLADRIBINE
     Indication: Relapsing-remitting multiple sclerosis
     Dosage: YEAR ONE WEEK ONE THERAPY. 2 DOSAGE FORM ON DAYS 1 TO 3 AND 1 DOSAGE FORM ON DAYS 4 AND 5.
     Route: 048
     Dates: start: 20230130
  2. MAVENCLAD [Suspect]
     Active Substance: CLADRIBINE
     Dosage: YEAR ONE WEEK FIVE THERAPY. 2 DOSAGE FORM ON DAYS 1 TO 3 AND 1 DOSAGE FORM ON DAYS 4 AND 5.
     Route: 048
     Dates: start: 20230227

REACTIONS (1)
  - Hepatic neoplasm [Unknown]
